FAERS Safety Report 8222937 (Version 2)
Quarter: 2012Q4

REPORT INFORMATION
  Report Type: 
  Country: US (occurrence: US)
  Receive Date: 20111102
  Receipt Date: 20121023
  Transmission Date: 20130627
  Serious: No
  Sender: FDA-Public Use
  Company Number: US-AMGEN-USASP2011029102

PATIENT
  Age: 42 Year
  Sex: Female

DRUGS (1)
  1. ENBREL [Suspect]
     Indication: ANKYLOSING SPONDYLITIS
     Dosage: 50 mg, qwk
     Route: 058
     Dates: start: 20110407, end: 20110617

REACTIONS (10)
  - Arthropod bite [Recovered/Resolved]
  - Fall [Not Recovered/Not Resolved]
  - Soft tissue inflammation [Not Recovered/Not Resolved]
  - Asthma [Unknown]
  - Swelling [Unknown]
  - Erythema [Unknown]
  - Tenderness [Unknown]
  - Lymphadenopathy [Recovered/Resolved]
  - Sinusitis [Recovered/Resolved]
  - Bronchitis [Recovered/Resolved]
